FAERS Safety Report 6611926-2 (Version None)
Quarter: 2010Q1

REPORT INFORMATION
  Report Type: 
  Country: None (occurrence: None)
  Receive Date: 20100226
  Receipt Date: 20100226
  Transmission Date: 20100710
  Serious: Yes (Other)
  Sender: FDA-Public Use
  Company Number: None

PATIENT
  Age: 63 Year
  Sex: Female
  Weight: 68.0396 kg

DRUGS (1)
  1. PREVACID [Suspect]
     Indication: DYSPEPSIA
     Dosage: ONE DAILY ONE DAILY PO
     Route: 048
     Dates: start: 20100215, end: 20100215

REACTIONS (6)
  - DIZZINESS [None]
  - DRUG HYPERSENSITIVITY [None]
  - FLUSHING [None]
  - PALPITATIONS [None]
  - PRURITUS GENERALISED [None]
  - SCAR [None]
